FAERS Safety Report 7650637-1 (Version None)
Quarter: 2011Q3

REPORT INFORMATION
  Report Type: 
  Country: None (occurrence: None)
  Receive Date: 20110802
  Receipt Date: 20110727
  Transmission Date: 20111222
  Serious: Yes (Hospitalization)
  Sender: FDA-Public Use
  Company Number: DE-ROCHE-792935

PATIENT
  Sex: Female
  Weight: 93 kg

DRUGS (4)
  1. RIBAVIRIN [Suspect]
     Route: 065
     Dates: start: 20110503
  2. TELAPREVIR [Suspect]
     Route: 065
     Dates: start: 20110503
  3. PEGINTERFERON ALFA-2A [Suspect]
     Route: 065
     Dates: start: 20110503
  4. TELAPREVIR [Suspect]
     Route: 065

REACTIONS (1)
  - VAGINAL HAEMORRHAGE [None]
